FAERS Safety Report 4439028-4 (Version None)
Quarter: 2004Q3

REPORT INFORMATION
  Report Type: 
  Country: None (occurrence: None)
  Receive Date: 20040830
  Receipt Date: 20040820
  Transmission Date: 20050211
  Serious: Yes (Other)
  Sender: FDA-Public Use
  Company Number: 2004-08-1126

PATIENT
  Age: 34 Year
  Sex: Female

DRUGS (3)
  1. INTRON A [Suspect]
     Indication: CHRONIC MYELOID LEUKAEMIA
     Dosage: SEE IMAGE
     Dates: start: 19940811, end: 19950909
  2. INTRON A [Suspect]
     Indication: CHRONIC MYELOID LEUKAEMIA
     Dosage: SEE IMAGE
     Dates: start: 19950910, end: 19950929
  3. HYDROXYUREA [Concomitant]

REACTIONS (6)
  - APLASTIC ANAEMIA [None]
  - BONE MARROW TRANSPLANT [None]
  - GRAFT VERSUS HOST DISEASE [None]
  - PANCYTOPENIA [None]
  - THERAPY NON-RESPONDER [None]
  - VIRAL INFECTION [None]
